FAERS Safety Report 4927876-3 (Version None)
Quarter: 2006Q1

REPORT INFORMATION
  Report Type: 
  Country: None (occurrence: None)
  Receive Date: 20060131
  Receipt Date: 20051017
  Transmission Date: 20060701
  Serious: Yes (Other)
  Sender: FDA-Public Use
  Company Number: 200516243US

PATIENT
  Age: 35 Year
  Sex: Female
  Weight: 119 kg

DRUGS (6)
  1. KETEK [Suspect]
     Indication: SINUSITIS
     Dates: start: 20050725, end: 20050727
  2. BUPROPION HYDROCHLORIDE (WELLBUTRIN - SLOW RELEASE) [Concomitant]
  3. OXCARBAZEPINE (TRILEPTAL ^CIBA-GEIGY^) [Concomitant]
  4. PANTOPRAZOLE SODIUM [Concomitant]
  5. TRAZODONE HCL [Concomitant]
  6. VITAMINS NOS (VITAMINS NOS) [Concomitant]

REACTIONS (3)
  - ABDOMINAL DISTENSION [None]
  - ABDOMINAL PAIN [None]
  - FLATULENCE [None]
